FAERS Safety Report 20156600 (Version 2)
Quarter: 2021Q4

REPORT INFORMATION
  Report Type: Spontaneous
  Country: US (occurrence: US)
  Receive Date: 20211207
  Receipt Date: 20211230
  Transmission Date: 20220303
  Serious: Yes (Other)
  Sender: FDA-Public Use
  Company Number: US-BAYER-2021A258641

PATIENT
  Age: 12 Year
  Sex: Male

DRUGS (1)
  1. CLARITIN-D NOS [Suspect]
     Active Substance: LORATADINE\PSEUDOEPHEDRINE SULFATE
     Dosage: 1 DF
     Dates: start: 20211105, end: 20211105

REACTIONS (6)
  - Hallucination [Recovered/Resolved]
  - Abnormal behaviour [Recovered/Resolved]
  - Limb discomfort [Recovered/Resolved]
  - Hallucination, visual [Recovered/Resolved]
  - Agitation [Recovered/Resolved]
  - Staring [Recovered/Resolved]

NARRATIVE: CASE EVENT DATE: 20211105
